FAERS Safety Report 4517674-7 (Version None)
Quarter: 2004Q4

REPORT INFORMATION
  Report Type: 
  Country: None (occurrence: None)
  Receive Date: 20041202
  Receipt Date: 20041202
  Transmission Date: 20050328
  Serious: Yes (Hospitalization, Other)
  Sender: FDA-Public Use
  Company Number: None

PATIENT
  Age: 76 Year
  Sex: Male
  Weight: 83.4619 kg

DRUGS (1)
  1. VIOXX [Suspect]
     Indication: ARTHRITIS
     Dosage: 1 PER DAY
     Dates: end: 20040904

REACTIONS (3)
  - HEADACHE [None]
  - HYPOAESTHESIA ORAL [None]
  - PARAESTHESIA [None]
